FAERS Safety Report 8948562 (Version 2)
Quarter: 2012Q4

REPORT INFORMATION
  Report Type: 
  Country: US (occurrence: US)
  Receive Date: 20121206
  Receipt Date: 20121231
  Transmission Date: 20130627
  Serious: Yes (Other)
  Sender: FDA-Public Use
  Company Number: PHEH2012US023953

PATIENT
  Sex: Female

DRUGS (2)
  1. RECLAST [Suspect]
     Indication: OSTEOPOROSIS
     Dosage: UNK
     Route: 042
     Dates: start: 201106
  2. RECLAST [Suspect]
     Dosage: UNK
     Route: 042
     Dates: start: 201208

REACTIONS (2)
  - Foot fracture [Unknown]
  - Pain in extremity [Unknown]
